FAERS Safety Report 6851138-0 (Version None)
Quarter: 2010Q3

REPORT INFORMATION
  Report Type: 
  Country: None (occurrence: None)
  Receive Date: 20100716
  Receipt Date: 20100712
  Transmission Date: 20110219
  Serious: Yes (Other)
  Sender: FDA-Public Use
  Company Number: US-AMGEN-KDC423644

PATIENT
  Age: 58 Year
  Sex: Male

DRUGS (7)
  1. NEULASTA [Suspect]
     Indication: LYMPHOMA
     Route: 058
     Dates: start: 20070814
  2. RITUXIMAB [Suspect]
     Route: 042
     Dates: start: 20070814
  3. VELCADE [Suspect]
     Route: 042
     Dates: start: 20070814
  4. CYCLOPHOSPHAMIDE [Suspect]
     Route: 042
     Dates: start: 20070814
  5. DOXORUBICIN HYDROCHLORIDE [Suspect]
     Route: 042
     Dates: start: 20070814
  6. DEXAMETHASONE [Suspect]
     Dates: start: 20070814
  7. VINCRISTINE [Suspect]
     Route: 042
     Dates: start: 20070814

REACTIONS (1)
  - LYMPHOPENIA [None]
